FAERS Safety Report 7588410-5 (Version None)
Quarter: 2011Q3

REPORT INFORMATION
  Report Type: 
  Country: None (occurrence: None)
  Receive Date: 20110705
  Receipt Date: 20100921
  Transmission Date: 20111222
  Serious: Yes (Hospitalization)
  Sender: FDA-Public Use
  Company Number: JP-BAYER-2011-048567

PATIENT
  Age: 78 Year
  Sex: Female
  Weight: 42 kg

DRUGS (10)
  1. ALDACTONE [Concomitant]
     Indication: PROPHYLAXIS
     Dosage: DAILY DOSE 25 MG
     Route: 048
     Dates: end: 20100725
  2. OLMESARTAN MEDOXOMIL [Concomitant]
     Indication: HYPERTENSION
     Dosage: DAILY DOSE 20 MG
     Route: 048
  3. KAYTWO [Concomitant]
     Indication: PROPHYLAXIS
     Dosage: DAILY DOSE 10 MG
     Route: 048
     Dates: start: 20100524
  4. NEXAVAR [Suspect]
     Indication: HEPATIC NEOPLASM MALIGNANT
     Dosage: 400 MG, BID
     Route: 048
     Dates: start: 20100517, end: 20100530
  5. NEXAVAR [Suspect]
     Dosage: 400 MG, QD
     Route: 048
     Dates: start: 20100531, end: 20100607
  6. KERATINAMIN [Concomitant]
     Indication: PALMAR-PLANTAR ERYTHRODYSAESTHESIA SYNDROME
     Dosage: UNK
     Route: 061
     Dates: start: 20100524
  7. PORTOLAC [Concomitant]
     Indication: HYPERAMMONAEMIA
     Dosage: DAILY DOSE 18 G
     Route: 048
     Dates: start: 20100531
  8. RABEPRAZOLE SODIUM [Concomitant]
     Indication: GASTRITIS PROPHYLAXIS
     Dosage: DAILY DOSE 10 MG
     Route: 048
  9. CALBLOCK [Concomitant]
     Indication: HYPERTENSION
     Dosage: DAILY DOSE 16 MG
     Route: 048
  10. LIVACT [Concomitant]
     Indication: HYPOALBUMINAEMIA
     Dosage: DAILY DOSE 12.45 G
     Route: 048

REACTIONS (6)
  - PALMAR-PLANTAR ERYTHRODYSAESTHESIA SYNDROME [None]
  - OEDEMA PERIPHERAL [None]
  - BLOOD ALBUMIN DECREASED [None]
  - ASCITES [None]
  - RASH [None]
  - DECREASED APPETITE [None]
